FAERS Safety Report 11119063 (Version 1)
Quarter: 2015Q2

REPORT INFORMATION
  Report Type: Report from Study
  Country: JP (occurrence: JP)
  Receive Date: 20150518
  Receipt Date: 20150518
  Transmission Date: 20150821
  Serious: Yes (Life-Threatening, Other)
  Sender: FDA-Public Use
  Company Number: JP-SHIONOGI, INC-2015000062

PATIENT
  Age: 1 Year
  Sex: Male
  Weight: 9.4 kg

DRUGS (37)
  1. CARBOPLATIN. [Suspect]
     Active Substance: CARBOPLATIN
     Indication: NEUROBLASTOMA
     Dosage: 122 MG, QD
     Route: 065
     Dates: start: 20140912, end: 20140915
  2. MAGLAX [Concomitant]
     Active Substance: MAGNESIUM OXIDE
     Indication: CONSTIPATION
     Dosage: 500 MG, QD
     Route: 048
     Dates: start: 20140902
  3. TOBRACIN                           /00304201/ [Concomitant]
     Indication: PROPHYLAXIS
     Dosage: UNK, TID
     Route: 065
     Dates: start: 20140902
  4. NEOSTELIN GREEN [Concomitant]
     Indication: PROPHYLAXIS
     Dosage: UNK, PRN
     Route: 065
  5. NEUTROGIN [Concomitant]
     Active Substance: LENOGRASTIM
     Indication: NEUTROPENIA
     Dosage: 50 MCG, QD
     Route: 065
     Dates: start: 20140921
  6. RAVONAL [Concomitant]
     Active Substance: THIOPENTAL
     Dosage: UNK, PRN
     Route: 065
     Dates: start: 20140901, end: 20140904
  7. ULTIVA [Concomitant]
     Active Substance: REMIFENTANIL HYDROCHLORIDE
     Indication: NEUROBLASTOMA
     Dosage: UNK, PRN
     Route: 065
     Dates: start: 20140829, end: 20140829
  8. NEO-MINOPHAGEN C [Concomitant]
     Active Substance: AMMONIUM GLYCYRRHIZATE
     Indication: DRUG-INDUCED LIVER INJURY
     Dosage: 10 ML, QD
     Route: 065
     Dates: start: 20140916, end: 20140924
  9. FLUCONAZOLE. [Concomitant]
     Active Substance: FLUCONAZOLE
     Indication: PROPHYLAXIS
     Dosage: 50 MG, QD
     Route: 048
     Dates: end: 20140907
  10. BAKTAR [Concomitant]
     Active Substance: SULFAMETHOXAZOLE\TRIMETHOPRIM
     Indication: PROPHYLAXIS
     Dosage: 0.5 G, BID
     Route: 048
  11. CEFOTIAM [Concomitant]
     Active Substance: CEFOTIAM
     Indication: FEBRILE NEUTROPENIA
     Dosage: 250 MG, TID
     Route: 065
     Dates: start: 20140820, end: 20140822
  12. FUNGUARD [Concomitant]
     Active Substance: MICAFUNGIN SODIUM
     Indication: PROPHYLAXIS
     Dosage: 30 MG, QD
     Route: 065
     Dates: start: 20140908
  13. MEROPENEM. [Concomitant]
     Active Substance: MEROPENEM
     Indication: FEBRILE NEUTROPENIA
     Dosage: 360 MG, TID
     Route: 065
     Dates: start: 20140912
  14. MAGNESIUM OXIDE. [Concomitant]
     Active Substance: MAGNESIUM OXIDE
     Indication: CONSTIPATION
     Dosage: 0.4 G, QD
     Route: 048
     Dates: end: 20140901
  15. KENKETSU GLOVENIN I NICHIYAKU [Concomitant]
     Indication: PROPHYLAXIS
     Dosage: 2500 MG, QD
     Route: 065
     Dates: start: 20140911, end: 20140911
  16. CEFAZOLIN SODIUM. [Concomitant]
     Active Substance: CEFAZOLIN SODIUM
     Indication: PROPHYLAXIS
     Dosage: 150 MG, TID
     Route: 065
     Dates: start: 20140829, end: 20140905
  17. VANCOMYCIN HYDROCHLORIDE. [Concomitant]
     Active Substance: VANCOMYCIN HYDROCHLORIDE
     Indication: DEVICE RELATED INFECTION
     Dosage: 140 MG, QID
     Route: 065
     Dates: start: 20140905, end: 20140922
  18. ESLAX [Concomitant]
     Active Substance: ROCURONIUM BROMIDE
     Indication: NEUROBLASTOMA
     Dosage: UNK, PRN
     Route: 065
     Dates: start: 20140829, end: 20140829
  19. DIAGNOGREEN [Concomitant]
     Indication: NEUROBLASTOMA
     Dosage: 5 MG, QD
     Route: 065
     Dates: start: 20140903, end: 20140903
  20. FRAGMIN [Concomitant]
     Active Substance: DALTEPARIN SODIUM
     Indication: PROPHYLAXIS
     Dosage: 720 IU, QD
     Route: 065
     Dates: start: 20140907
  21. HAPTOGLOBIN [Concomitant]
     Indication: NEUROBLASTOMA
     Dosage: 1000 IU, QD
     Route: 065
     Dates: start: 20140919, end: 20140919
  22. ACICLOVIR [Concomitant]
     Active Substance: ACYCLOVIR
     Indication: PROPHYLAXIS
     Dosage: 50 MG, TID
     Route: 065
     Dates: start: 20140910
  23. RAVONAL [Concomitant]
     Active Substance: THIOPENTAL
     Indication: NEUROBLASTOMA
     Dosage: UNK, PRN
     Route: 065
     Dates: start: 20140827, end: 20140827
  24. ALKERAN [Suspect]
     Active Substance: MELPHALAN
     Indication: NEUROBLASTOMA
     Dosage: 30 MG, QD
     Route: 065
     Dates: start: 20140910, end: 20140911
  25. TOBRACIN                           /00304201/ [Concomitant]
     Indication: PROPHYLAXIS
     Dosage: UNK UNK, TID
     Route: 065
     Dates: start: 20140902
  26. HALIZON [Concomitant]
     Indication: PROPHYLAXIS
     Dosage: 200 MG, TID
     Route: 048
     Dates: start: 20140902
  27. URSO [Concomitant]
     Active Substance: URSODIOL
     Indication: PROPHYLAXIS
     Dosage: 150 MG, QD
     Route: 048
     Dates: start: 20140902
  28. NEUTROGIN [Concomitant]
     Active Substance: LENOGRASTIM
     Indication: NEUTROPENIA
     Dosage: UNK, QD
     Route: 065
     Dates: start: 20140811, end: 20140831
  29. GRANISETRON [Concomitant]
     Active Substance: GRANISETRON
     Indication: PROPHYLAXIS
     Dosage: UNK UNK, PRN
     Route: 065
     Dates: start: 20140908, end: 20140916
  30. FINIBAX [Suspect]
     Active Substance: DORIPENEM MONOHYDRATE
     Indication: FEBRILE NEUTROPENIA
     Dosage: 38 MG/KG, TID
     Route: 041
     Dates: start: 20140822, end: 20140827
  31. PANIMYCIN [Concomitant]
     Active Substance: DIBEKACIN SULFATE
     Indication: PROPHYLAXIS
     Dosage: UNK, QID
     Route: 065
     Dates: start: 20140902
  32. BIOFERMIN R [Concomitant]
     Active Substance: BACILLUS SUBTILIS\LACTOBACILLUS ACIDOPHILUS\STREPTOCOCCUS FAECAIS
     Indication: DIARRHOEA
     Dosage: 4.5 MG, QD
     Route: 048
     Dates: start: 20140919
  33. KENKETSU GLOVENIN I NICHIYAKU [Concomitant]
     Dosage: 2500 MG, QD
     Route: 065
     Dates: start: 20140918, end: 20140918
  34. ETOPOSIDE. [Suspect]
     Active Substance: ETOPOSIDE
     Indication: NEUROBLASTOMA
     Dosage: 62 MG, QD
     Route: 065
     Dates: start: 20140912, end: 20140915
  35. FUNGIZONE [Concomitant]
     Active Substance: AMPHOTERICIN B
     Indication: PROPHYLAXIS
     Dosage: UNK, TID
     Route: 065
     Dates: start: 20140902
  36. AMIKACIN SULFATE. [Concomitant]
     Active Substance: AMIKACIN SULFATE
     Indication: FEBRILE NEUTROPENIA
     Dosage: 200 MG, QD
     Route: 065
     Dates: start: 20140922
  37. FENTANYL. [Concomitant]
     Active Substance: FENTANYL
     Indication: NEUROBLASTOMA
     Dosage: UNK, PRN
     Route: 065
     Dates: start: 20140829, end: 20140829

REACTIONS (6)
  - Device related infection [Recovered/Resolved]
  - Neutropenia [Recovered/Resolved]
  - Drug-induced liver injury [Recovered/Resolved]
  - Febrile neutropenia [Recovered/Resolved]
  - Diarrhoea [Recovered/Resolved]
  - Pain [Recovered/Resolved]

NARRATIVE: CASE EVENT DATE: 20140905
